FAERS Safety Report 16930385 (Version 1)
Quarter: 2019Q4

REPORT INFORMATION
  Report Type: Report from Study
  Country: NL (occurrence: NL)
  Receive Date: 20191017
  Receipt Date: 20191017
  Transmission Date: 20200122
  Serious: Yes (Death)
  Sender: FDA-Public Use
  Company Number: NVSC2019NL001676

PATIENT
  Age: 81 Year
  Sex: Female

DRUGS (1)
  1. ZOMETA [Suspect]
     Active Substance: ZOLEDRONIC ACID
     Indication: PRODUCT USED FOR UNKNOWN INDICATION
     Dosage: 4MG/100ML ONCE EVERY 26 WEEKS
     Route: 042

REACTIONS (2)
  - Inappropriate schedule of product administration [Unknown]
  - Death [Fatal]

NARRATIVE: CASE EVENT DATE: 20190902
